FAERS Safety Report 11589824 (Version 1)
Quarter: 2015Q4

REPORT INFORMATION
  Report Type: Spontaneous
  Country: IR (occurrence: IR)
  Receive Date: 20151002
  Receipt Date: 20151002
  Transmission Date: 20160304
  Serious: Yes (Other)
  Sender: FDA-Public Use
  Company Number: IR-BD RX INC-2015BDR00619

PATIENT
  Age: 4 Year
  Sex: Female

DRUGS (1)
  1. METOCLOPRAMIDE. [Suspect]
     Active Substance: METOCLOPRAMIDE
     Route: 051

REACTIONS (4)
  - Peroneal nerve palsy [None]
  - Gait disturbance [None]
  - Wrong technique in product usage process [None]
  - Sciatic nerve palsy [Recovering/Resolving]
